FAERS Safety Report 10523062 (Version 2)
Quarter: 2015Q1

REPORT INFORMATION
  Report Type: Spontaneous
  Country: US (occurrence: US)
  Receive Date: 20141016
  Receipt Date: 20150108
  Transmission Date: 20150720
  Serious: Yes (Hospitalization)
  Sender: FDA-Public Use
  Company Number: US-GLAXOSMITHKLINE-US2014GSK007978

PATIENT
  Age: 40 Year
  Sex: Female

DRUGS (6)
  1. LAMICTAL [Suspect]
     Active Substance: LAMOTRIGINE
     Indication: ATTENTION DEFICIT/HYPERACTIVITY DISORDER
     Dosage: 300 MG, QD
     Route: 048
     Dates: start: 2011
  2. AMBIEN [Concomitant]
     Active Substance: ZOLPIDEM TARTRATE
  3. KLONOPIN [Concomitant]
     Active Substance: CLONAZEPAM
  4. LAMICTAL [Suspect]
     Active Substance: LAMOTRIGINE
     Indication: BIPOLAR DISORDER
  5. HIGH BLOOD PRESSURE TREATMENT - UNKNOWN [Concomitant]
  6. WELLBUTRIN [Suspect]
     Active Substance: BUPROPION HYDROCHLORIDE
     Dosage: UNK, U

REACTIONS (2)
  - Anxiety [Unknown]
  - Intervertebral disc degeneration [Recovering/Resolving]
